FAERS Safety Report 6155896-2 (Version None)
Quarter: 2009Q2

REPORT INFORMATION
  Report Type: 
  Country: None (occurrence: None)
  Receive Date: 20090415
  Receipt Date: 20090407
  Transmission Date: 20091009
  Serious: Yes (Other)
  Sender: FDA-Public Use
  Company Number: US-AMGEN-QUU342077

PATIENT
  Sex: Female

DRUGS (1)
  1. ENBREL [Suspect]
     Indication: PSORIASIS
     Route: 058
     Dates: start: 20081101

REACTIONS (4)
  - FOOT FRACTURE [None]
  - MUSCULOSKELETAL PAIN [None]
  - POST PROCEDURAL COMPLICATION [None]
  - POSTOPERATIVE THROMBOSIS [None]
